FAERS Safety Report 5482871-3 (Version None)
Quarter: 2007Q4

REPORT INFORMATION
  Report Type: 
  Country: None (occurrence: None)
  Receive Date: 20071011
  Receipt Date: 20071001
  Transmission Date: 20080405
  Serious: Yes (Death)
  Sender: FDA-Public Use
  Company Number: US-PFIZER INC-2007083735

PATIENT
  Sex: Female

DRUGS (2)
  1. LOMOTIL (TABLET) [Suspect]
  2. LASIX [Concomitant]

REACTIONS (2)
  - ARRHYTHMIA [None]
  - BLOOD POTASSIUM DECREASED [None]
